FAERS Safety Report 6638766-2 (Version None)
Quarter: 2010Q1

REPORT INFORMATION
  Report Type: 
  Country: None (occurrence: None)
  Receive Date: 20100317
  Receipt Date: 20100305
  Transmission Date: 20100710
  Serious: Yes (Other)
  Sender: FDA-Public Use
  Company Number: US-PFIZER INC-2009312290

PATIENT
  Sex: Female
  Weight: 19.5 kg

DRUGS (2)
  1. GENOTROPIN [Suspect]
     Indication: TURNER'S SYNDROME
     Dosage: 1 MG, UNK
     Dates: start: 20091001
  2. STRATTERA [Concomitant]
     Dosage: UNK

REACTIONS (7)
  - AGGRESSION [None]
  - ANXIETY [None]
  - ATTENTION DEFICIT/HYPERACTIVITY DISORDER [None]
  - CONDITION AGGRAVATED [None]
  - INCORRECT DOSE ADMINISTERED [None]
  - PARANOIA [None]
  - PSYCHOTIC DISORDER [None]
